FAERS Safety Report 10359047 (Version 1)
Quarter: 2014Q3

REPORT INFORMATION
  Report Type: Spontaneous
  Country: US (occurrence: None)
  Receive Date: 20140730
  Receipt Date: 20140730
  Transmission Date: 20150326
  Serious: Yes (Other)
  Sender: FDA-Public Use
  Company Number: None

PATIENT
  Age: 22 Year
  Sex: Male
  Weight: 120.2 kg

DRUGS (1)
  1. OXYCONTIN [Suspect]
     Active Substance: OXYCODONE HYDROCHLORIDE
     Indication: BACK DISORDER
     Dosage: TAKEN BY MOUTH
     Route: 048

REACTIONS (6)
  - Palpitations [None]
  - Suspected counterfeit product [None]
  - Drug ineffective [None]
  - Pain [None]
  - Hypertension [None]
  - Cardiac disorder [None]

NARRATIVE: CASE EVENT DATE: 20140722
